FAERS Safety Report 8008683-4 (Version None)
Quarter: 2011Q4

REPORT INFORMATION
  Report Type: 
  Country: None (occurrence: None)
  Receive Date: 20111227
  Receipt Date: 20111220
  Transmission Date: 20120403
  Serious: Yes (Hospitalization)
  Sender: FDA-Public Use
  Company Number: JP-MERCK-1112USA03007

PATIENT
  Age: 31 Year
  Sex: Male

DRUGS (3)
  1. PREDNISOLONE [Concomitant]
     Indication: EOSINOPHILIC PNEUMONIA CHRONIC
     Route: 048
     Dates: start: 20110101
  2. PREDNISOLONE [Concomitant]
     Route: 048
     Dates: start: 20100101, end: 20110101
  3. SINGULAIR [Suspect]
     Indication: WHEEZING
     Route: 048
     Dates: start: 20110201

REACTIONS (8)
  - MUSCULAR WEAKNESS [None]
  - NEUROPATHY PERIPHERAL [None]
  - THROMBOCYTOSIS [None]
  - EOSINOPHILIA [None]
  - MONONEUROPATHY MULTIPLEX [None]
  - VASCULITIS [None]
  - HYPOAESTHESIA [None]
  - EOSINOPHILIC PNEUMONIA CHRONIC [None]
